FAERS Safety Report 11175914 (Version 2)
Quarter: 2015Q2

REPORT INFORMATION
  Report Type: Other
  Country: IT (occurrence: IT)
  Receive Date: 20150609
  Receipt Date: 20150623
  Transmission Date: 20150821
  Serious: Yes (Hospitalization)
  Sender: FDA-Public Use
  Company Number: IT-MYLANLABS-2015M1017817

PATIENT

DRUGS (1)
  1. IBUPROFEN. [Suspect]
     Active Substance: IBUPROFEN
     Indication: ANALGESIC THERAPY
     Dosage: 200 MG, TOTAL
     Route: 048
     Dates: start: 20150217, end: 20150217

REACTIONS (1)
  - Oedema genital [Recovered/Resolved]

NARRATIVE: CASE EVENT DATE: 20150218
